FAERS Safety Report 19301262 (Version 1)
Quarter: 2021Q2

REPORT INFORMATION
  Report Type: Spontaneous
  Country: US (occurrence: US)
  Receive Date: 20210525
  Receipt Date: 20210525
  Transmission Date: 20210717
  Serious: Yes (Disabling)
  Sender: FDA-Public Use
  Company Number: None

PATIENT
  Age: 63 Year
  Sex: Male
  Weight: 77 kg

DRUGS (3)
  1. DRONABINOL 5 MG [Concomitant]
     Active Substance: DRONABINOL
  2. OXYCODONE AND ACETAMINOPHEN [Concomitant]
     Active Substance: ACETAMINOPHEN\OXYCODONE HYDROCHLORIDE
  3. SORAFENIB [Suspect]
     Active Substance: SORAFENIB
     Indication: CHOLANGIOCARCINOMA
     Route: 048
     Dates: start: 20201221, end: 20210421

REACTIONS (2)
  - Ascites [None]
  - Hepatic cirrhosis [None]

NARRATIVE: CASE EVENT DATE: 20210512
